FAERS Safety Report 11428683 (Version 1)
Quarter: 2015Q3

REPORT INFORMATION
  Report Type: Spontaneous
  Country: US (occurrence: None)
  Receive Date: 20150827
  Receipt Date: 20150827
  Transmission Date: 20151125
  Serious: No
  Sender: FDA-Public Use
  Company Number: None

PATIENT
  Age: 55 Year
  Sex: Female

DRUGS (1)
  1. MYCOPHENOLATE [Suspect]
     Active Substance: MYCOPHENOLIC ACID
     Indication: ORGAN TRANSPLANT
     Route: 048
     Dates: start: 201201

REACTIONS (2)
  - Agitation [None]
  - Mood altered [None]

NARRATIVE: CASE EVENT DATE: 20140905
